FAERS Safety Report 23976524 (Version 1)
Quarter: 2024Q2

REPORT INFORMATION
  Report Type: Spontaneous
  Country: US (occurrence: US)
  Receive Date: 20240614
  Receipt Date: 20240614
  Transmission Date: 20240715
  Serious: Yes (Other)
  Sender: FDA-Public Use
  Company Number: US-SUN PHARMACEUTICAL INDUSTRIES LTD-2024R1-450836

PATIENT
  Age: 37 Year
  Sex: Female

DRUGS (4)
  1. CARBOPLATIN [Suspect]
     Active Substance: CARBOPLATIN
     Indication: Adenocarcinoma metastatic
     Dosage: UNK
     Route: 065
  2. CARBOPLATIN\PACLITAXEL [Suspect]
     Active Substance: CARBOPLATIN\PACLITAXEL
     Indication: Adenocarcinoma metastatic
     Dosage: UNK
     Route: 065
  3. BEVACIZUMAB [Suspect]
     Active Substance: BEVACIZUMAB
     Indication: Adenocarcinoma metastatic
     Dosage: UNK
     Route: 065
  4. ATEZOLIZUMAB [Suspect]
     Active Substance: ATEZOLIZUMAB
     Indication: Adenocarcinoma metastatic
     Dosage: UNK
     Route: 065

REACTIONS (2)
  - Deep vein thrombosis [Unknown]
  - Cerebrovascular accident [Unknown]
